FAERS Safety Report 20813423 (Version 2)
Quarter: 2022Q2

REPORT INFORMATION
  Report Type: Report from Study
  Country: GB (occurrence: GB)
  Receive Date: 20220511
  Receipt Date: 20220516
  Transmission Date: 20220721
  Serious: Yes (Other)
  Sender: FDA-Public Use
  Company Number: GB-TEVA-2022-GB-2035230

PATIENT

DRUGS (2)
  1. WARFARIN [Suspect]
     Active Substance: WARFARIN
     Indication: Anticoagulant therapy
     Route: 048
  2. HEPARIN [Concomitant]
     Active Substance: HEPARIN SODIUM
     Indication: Product used for unknown indication
     Dosage: DURING THE ABLATION PROCEDURE, A BOLUS OF 100 IU/KG BODY WEIGHT OF HEPARIN WAS GIVEN AROUND THE T...
     Route: 065

REACTIONS (1)
  - Pericardial effusion [Recovered/Resolved]
